FAERS Safety Report 9285075 (Version 1)
Quarter: 2013Q2

REPORT INFORMATION
  Report Type: Spontaneous
  Country: CH (occurrence: CH)
  Receive Date: 20130513
  Receipt Date: 20130513
  Transmission Date: 20140414
  Serious: Yes (Other)
  Sender: FDA-Public Use
  Company Number: CH-JNJFOC-20130302759

PATIENT
  Age: 51 Year
  Sex: Female

DRUGS (2)
  1. RISPERIDONE [Suspect]
     Indication: BIPOLAR DISORDER
     Route: 065
  2. LYRICA [Concomitant]

REACTIONS (2)
  - Parotid gland enlargement [Recovered/Resolved]
  - Salivary hypersecretion [Recovered/Resolved]
